FAERS Safety Report 8530936-1 (Version None)
Quarter: 2012Q3

REPORT INFORMATION
  Report Type: 
  Country: None (occurrence: None)
  Receive Date: 20120723
  Receipt Date: 20120711
  Transmission Date: 20120928
  Serious: Yes (Hospitalization)
  Sender: FDA-Public Use
  Company Number: US-JNJFOC-20120705938

PATIENT
  Sex: Female

DRUGS (4)
  1. DURAGESIC-100 [Suspect]
     Route: 062
  2. FENTANYL-100 [Suspect]
     Indication: PAIN
     Dosage: 100 + 25 UG/HOUR
     Route: 062
     Dates: start: 20120101, end: 20120101
  3. DURAGESIC-100 [Suspect]
     Dosage: 100   25 UG/HOUR
     Route: 062
     Dates: start: 20120101, end: 20120101
  4. DURAGESIC-100 [Suspect]
     Indication: PAIN
     Route: 062
     Dates: end: 20120101

REACTIONS (12)
  - BODY HEIGHT DECREASED [None]
  - THERAPEUTIC RESPONSE UNEXPECTED WITH DRUG SUBSTITUTION [None]
  - DRUG INEFFECTIVE [None]
  - CATARACT [None]
  - EXPIRED DRUG ADMINISTERED [None]
  - PAIN [None]
  - INTERVERTEBRAL DISC PROTRUSION [None]
  - OVERDOSE [None]
  - LUNG NEOPLASM MALIGNANT [None]
  - PRODUCT QUALITY ISSUE [None]
  - MALAISE [None]
  - HYPOTENSION [None]
